FAERS Safety Report 7941081-8 (Version None)
Quarter: 2011Q4

REPORT INFORMATION
  Report Type: 
  Country: None (occurrence: None)
  Receive Date: 20111128
  Receipt Date: 20111111
  Transmission Date: 20120403
  Serious: No
  Sender: FDA-Public Use
  Company Number: US-BAYER-2011-109629

PATIENT
  Age: 58 Year
  Sex: Female

DRUGS (4)
  1. SARGRAMOSTIM [Suspect]
     Dosage: 250 ?G, QD
     Route: 058
     Dates: start: 20111110
  2. LEXAPRO [Concomitant]
     Dosage: 10 MG, QD
  3. VITAMIN D [Concomitant]
     Dosage: 20000 IU, QID
  4. SARGRAMOSTIM [Suspect]
     Indication: SKIN NEOPLASM EXCISION
     Dosage: 250 ?G, QD
     Route: 058
     Dates: start: 20111005, end: 20111019

REACTIONS (2)
  - EOSINOPHILIA [None]
  - HEPATIC ENZYME INCREASED [None]
